FAERS Safety Report 6029831-1 (Version None)
Quarter: 2008Q4

REPORT INFORMATION
  Report Type: 
  Country: None (occurrence: None)
  Receive Date: 20081222
  Receipt Date: 20081001
  Transmission Date: 20090506
  Serious: No
  Sender: FDA-Public Use
  Company Number: US-WYE-H06196708

PATIENT
  Age: 77 Year
  Sex: Male

DRUGS (3)
  1. PRISTIQ [Suspect]
     Indication: DEPRESSION
     Dosage: 50 MG 1X PER 1 DAY, ORAL
     Route: 048
     Dates: start: 20080930
  2. XANAX [Concomitant]
  3. DUO NEB (IPRATROPIUM BROMIDE/ALBUTEROL SULFATE) [Concomitant]

REACTIONS (5)
  - ASTHENIA [None]
  - CONDITION AGGRAVATED [None]
  - DRY EYE [None]
  - DRY MOUTH [None]
  - DYSPNOEA [None]
